FAERS Safety Report 9999034 (Version 1)
Quarter: 2014Q1

REPORT INFORMATION
  Report Type: Spontaneous
  Country: US (occurrence: None)
  Receive Date: 20140310
  Receipt Date: 20140310
  Transmission Date: 20141002
  Serious: Yes (Other)
  Sender: FDA-Public Use
  Company Number: AMAG201300243

PATIENT
  Age: 86 Year
  Sex: Female
  Weight: 45.4 kg

DRUGS (7)
  1. FERAHEME [Suspect]
     Indication: ANAEMIA
     Dosage: 255 MG, SINGLE, IV, PUSH
     Route: 042
     Dates: start: 20131212, end: 20131212
  2. LASIX (FUROSEMIDE SODIUM) [Concomitant]
  3. METOPROLOL (METOPROLOL TARTRATE) [Concomitant]
  4. SYNTHROID (LEVOTHYROXINE SODIUM) [Concomitant]
  5. PRANDIN (DEFLAZACORT) [Concomitant]
  6. PROTONIX (PANTOPRAZOLE SODIUM SESQUIHYDRATE) [Concomitant]
  7. LISINOPRIL (LISINOPRIL) [Concomitant]

REACTIONS (8)
  - Renal failure acute [None]
  - Chest pain [None]
  - Nausea [None]
  - Back pain [None]
  - Leukocytosis [None]
  - Hyperhidrosis [None]
  - Blood pressure increased [None]
  - Atrial fibrillation [None]
